FAERS Safety Report 8973920 (Version 1)
Quarter: 2012Q4

REPORT INFORMATION
  Report Type: Report from Study
  Country: JP (occurrence: JP)
  Receive Date: 20121218
  Receipt Date: 20121218
  Transmission Date: 20130627
  Serious: Yes (Hospitalization)
  Sender: FDA-Public Use
  Company Number: JP-GLAXOSMITHKLINE-B0853169A

PATIENT
  Age: 69 Year
  Sex: Female
  Weight: 61.7 kg

DRUGS (8)
  1. PAROXETINE [Suspect]
     Indication: BIPOLAR DISORDER
     Dosage: 10MG per day
     Route: 048
     Dates: start: 2001
  2. LITHIUM CARBONATE [Suspect]
     Indication: BIPOLAR DISORDER
     Route: 048
     Dates: start: 2001
  3. CARBAMAZEPINE [Suspect]
     Indication: BIPOLAR DISORDER
     Route: 048
     Dates: start: 2001
  4. INVESTIGATIONAL STUDY DRUG [Suspect]
     Indication: TYPE 2 DIABETES MELLITUS
     Dosage: 20MG per day
     Route: 048
     Dates: start: 20110223, end: 20110317
  5. ARIPIPRAZOLE [Suspect]
     Indication: BIPOLAR DISORDER
     Dosage: 3MG per day
     Route: 048
     Dates: start: 2001
  6. MIGLITOL [Suspect]
     Indication: DIABETES MELLITUS
     Dosage: 50MG Three times per day
     Route: 048
     Dates: start: 20090206
  7. RHYTHMY [Concomitant]
     Dosage: 2MG Per day
     Route: 048
     Dates: start: 2001
  8. LIVALO [Concomitant]
     Dosage: 2MG per day
     Dates: start: 20050224

REACTIONS (1)
  - Gastroenteritis [Recovered/Resolved]
